FAERS Safety Report 6091718-6 (Version None)
Quarter: 2009Q1

REPORT INFORMATION
  Report Type: 
  Country: None (occurrence: None)
  Receive Date: 20090225
  Receipt Date: 20080424
  Transmission Date: 20090719
  Serious: Yes (Disabling)
  Sender: FDA-Public Use
  Company Number: A0724572A

PATIENT
  Age: 54 Year
  Sex: Female

DRUGS (7)
  1. VALTREX [Suspect]
     Dosage: 500MG THREE TIMES PER DAY
     Route: 048
     Dates: start: 20080423, end: 20080423
  2. SIMVASTATIN [Concomitant]
  3. PROZAC [Concomitant]
  4. FISH OIL [Concomitant]
  5. MULTI-VITAMIN [Concomitant]
  6. ASPIRIN [Concomitant]
  7. KLONOPIN [Concomitant]

REACTIONS (5)
  - ADVERSE DRUG REACTION [None]
  - DIZZINESS [None]
  - HEADACHE [None]
  - NAUSEA [None]
  - PRURITUS [None]
